FAERS Safety Report 5515182-8 (Version None)
Quarter: 2007Q4

REPORT INFORMATION
  Report Type: 
  Country: None (occurrence: None)
  Receive Date: 20071113
  Receipt Date: 20070212
  Transmission Date: 20080405
  Serious: No
  Sender: FDA-Public Use
  Company Number: A0637790A

PATIENT
  Age: 83 Year
  Sex: Male

DRUGS (7)
  1. COREG [Suspect]
     Indication: LEFT VENTRICULAR DYSFUNCTION
     Dosage: 12.5MG TWICE PER DAY
     Route: 048
     Dates: start: 20070116
  2. FUROSEMIDE [Concomitant]
  3. POTASSIUM CHLORIDE [Concomitant]
  4. DIGOXIN [Concomitant]
  5. ISOSORBIDE MONONITRATE [Concomitant]
  6. LIPITOR [Concomitant]
  7. SYNTHROID [Concomitant]

REACTIONS (1)
  - HYPOTENSION [None]
